FAERS Safety Report 6906153 (Version 1)
Quarter: 2020Q3

REPORT INFORMATION
  Report Type: Spontaneous
  Country: GB (occurrence: GB)
  Receive Date: 20090210
  Receipt Date: 20090210
  Transmission Date: 20201105
  Serious: Yes (Other)
  Sender: FDA-Public Use
  Company Number: GB-ROCHE-611736

PATIENT
  Sex: Female

DRUGS (2)
  1. IBANDRONIC ACID. [Suspect]
     Active Substance: IBANDRONIC ACID
     Dosage: FIRST DOSE
     Route: 065
     Dates: start: 20090115
  2. EXEMESTANE. [Concomitant]
     Active Substance: EXEMESTANE
     Dosage: FIRST DOSE
     Dates: start: 20090109

REACTIONS (1)
  - Cerebrovascular accident [Unknown]
